FAERS Safety Report 15111695 (Version 2)
Quarter: 2018Q3

REPORT INFORMATION
  Report Type: Spontaneous
  Country: IT (occurrence: IT)
  Receive Date: 20180705
  Receipt Date: 20180705
  Transmission Date: 20181010
  Serious: Yes (Hospitalization)
  Sender: FDA-Public Use
  Company Number: IT-TEVA-2018-IT-895946

PATIENT
  Age: 80 Year
  Sex: Female

DRUGS (4)
  1. EXVIERA 250 MG FILM?COATED TABLETS [Suspect]
     Active Substance: DASABUVIR
     Indication: CHRONIC HEPATITIS C
     Dosage: 2 DOSAGE FORMS DAILY;
     Route: 048
     Dates: start: 20170605
  2. MICARDISPLUS 80?MG/25?MG TABLETS [Concomitant]
     Indication: PRODUCT USED FOR UNKNOWN INDICATION
     Dosage: 80 MG/25 MG
     Route: 065
  3. CETIRIZINE [Suspect]
     Active Substance: CETIRIZINE HYDROCHLORIDE
     Indication: PRURITUS
     Dosage: 10 MILLIGRAM DAILY;
     Route: 048
     Dates: start: 20170703, end: 20170705
  4. VIEKIRAX 12.5 MG/75 MG/50 MG FILM?COATED TABLETS [Suspect]
     Active Substance: OMBITASVIR\PARITAPREVIR\RITONAVIR
     Indication: CHRONIC HEPATITIS C
     Dosage: 2 DOSAGE FORMS DAILY; 12.5 MG/75 MG/50 MG
     Route: 048
     Dates: start: 20170605

REACTIONS (1)
  - Subarachnoid haemorrhage [Unknown]

NARRATIVE: CASE EVENT DATE: 20170727
